FAERS Safety Report 9616840 (Version 2)
Quarter: 2013Q4

REPORT INFORMATION
  Report Type: Report from Study
  Country: ES (occurrence: ES)
  Receive Date: 20131011
  Receipt Date: 20131011
  Transmission Date: 20140711
  Serious: Yes (Other)
  Sender: FDA-Public Use
  Company Number: ES-PFIZER INC-2013286272

PATIENT
  Age: 41 Year
  Sex: Female

DRUGS (7)
  1. CYTARABINE [Suspect]
     Indication: ACUTE MYELOID LEUKAEMIA RECURRENT
     Dosage: UNK
  2. IDARUBICIN HCL [Suspect]
     Indication: ACUTE MYELOID LEUKAEMIA RECURRENT
     Dosage: UNK
  3. MITOXANTRONE HCL [Suspect]
     Indication: ACUTE MYELOID LEUKAEMIA RECURRENT
     Dosage: UNK
  4. CEFTAZIDIME [Concomitant]
     Dosage: UNK
  5. VANCOMYCIN [Concomitant]
     Dosage: UNK
  6. LEVOFLOXACIN [Concomitant]
  7. CASPOFUNGIN [Concomitant]
     Dosage: UNK

REACTIONS (4)
  - Neutropenia [Recovered/Resolved]
  - Fungaemia [Recovered/Resolved]
  - Rash erythematous [Recovered/Resolved]
  - Bacterial infection [Recovered/Resolved]
